FAERS Safety Report 13989726 (Version 1)
Quarter: 2017Q3

REPORT INFORMATION
  Report Type: Spontaneous
  Country: CN (occurrence: CN)
  Receive Date: 20170920
  Receipt Date: 20170920
  Transmission Date: 20171128
  Serious: Yes (Other)
  Sender: FDA-Public Use
  Company Number: CN-MERCK KGAA-2026906

PATIENT
  Age: 30 Year
  Sex: Female

DRUGS (4)
  1. MENOTROPHIN [Concomitant]
     Active Substance: MENOTROPINS
  2. CLOMIPHENE [Concomitant]
     Active Substance: CLOMIPHENE
  3. HUMAN CHORIONIC GONADOTROPIN(CHORIONIC GONADOTROPHIN) [Concomitant]
  4. NOVOTHYROX [Suspect]
     Active Substance: LEVOTHYROXINE SODIUM
     Indication: HYPOTHYROIDISM
     Route: 048

REACTIONS (2)
  - Haemorrhage in pregnancy [None]
  - Maternal exposure during pregnancy [None]
